FAERS Safety Report 24398721 (Version 2)
Quarter: 2025Q3

REPORT INFORMATION
  Report Type: Spontaneous
  Country: EU (occurrence: EU)
  Receive Date: 20241004
  Receipt Date: 20250818
  Transmission Date: 20251021
  Serious: Yes (Life-Threatening, Hospitalization)
  Sender: MYLAN
  Company Number: EU-MYLANLABS-2024M1090218

PATIENT
  Age: 84 Year
  Sex: Male
  Weight: 68 kg

DRUGS (60)
  1. TAHOR [Suspect]
     Active Substance: ATORVASTATIN CALCIUM
     Indication: Cardiovascular event prophylaxis
     Dosage: 1 DOSAGE FORM, QD
  2. TAHOR [Suspect]
     Active Substance: ATORVASTATIN CALCIUM
     Dosage: 1 DOSAGE FORM, QD
     Route: 048
  3. TAHOR [Suspect]
     Active Substance: ATORVASTATIN CALCIUM
     Dosage: 1 DOSAGE FORM, QD
     Route: 048
  4. TAHOR [Suspect]
     Active Substance: ATORVASTATIN CALCIUM
     Dosage: 1 DOSAGE FORM, QD
  5. AMLODIPINE BESYLATE [Suspect]
     Active Substance: AMLODIPINE BESYLATE
     Indication: Myocardial ischaemia
     Dosage: 10 MILLIGRAM, QD
  6. AMLODIPINE BESYLATE [Suspect]
     Active Substance: AMLODIPINE BESYLATE
     Dosage: 10 MILLIGRAM, QD
  7. AMLODIPINE BESYLATE [Suspect]
     Active Substance: AMLODIPINE BESYLATE
     Dosage: 10 MILLIGRAM, QD
     Route: 048
  8. AMLODIPINE BESYLATE [Suspect]
     Active Substance: AMLODIPINE BESYLATE
     Dosage: 10 MILLIGRAM, QD
     Route: 048
  9. AMLODIPINE BESYLATE [Suspect]
     Active Substance: AMLODIPINE BESYLATE
  10. AMLODIPINE BESYLATE [Suspect]
     Active Substance: AMLODIPINE BESYLATE
  11. AMLODIPINE BESYLATE [Suspect]
     Active Substance: AMLODIPINE BESYLATE
     Route: 065
  12. AMLODIPINE BESYLATE [Suspect]
     Active Substance: AMLODIPINE BESYLATE
     Route: 065
  13. LANSOPRAZOLE [Suspect]
     Active Substance: LANSOPRAZOLE
     Indication: Prophylaxis
     Dosage: 30 MILLIGRAM, QD
  14. LANSOPRAZOLE [Suspect]
     Active Substance: LANSOPRAZOLE
     Dosage: 30 MILLIGRAM, QD
     Route: 048
  15. LANSOPRAZOLE [Suspect]
     Active Substance: LANSOPRAZOLE
     Dosage: 30 MILLIGRAM, QD
     Route: 048
  16. LANSOPRAZOLE [Suspect]
     Active Substance: LANSOPRAZOLE
     Dosage: 30 MILLIGRAM, QD
  17. ELIQUIS [Suspect]
     Active Substance: APIXABAN
     Indication: Cardiovascular event prophylaxis
     Dosage: 5 MILLIGRAM, QD
     Dates: end: 20240904
  18. ELIQUIS [Suspect]
     Active Substance: APIXABAN
     Dosage: 5 MILLIGRAM, QD
     Route: 048
     Dates: end: 20240904
  19. ELIQUIS [Suspect]
     Active Substance: APIXABAN
     Dosage: 5 MILLIGRAM, QD
     Route: 048
     Dates: end: 20240904
  20. ELIQUIS [Suspect]
     Active Substance: APIXABAN
     Dosage: 5 MILLIGRAM, QD
     Dates: end: 20240904
  21. HYDROXYUREA [Suspect]
     Active Substance: HYDROXYUREA
     Indication: Myelofibrosis
     Dosage: 1 GRAM, QW
     Dates: start: 201802
  22. HYDROXYUREA [Suspect]
     Active Substance: HYDROXYUREA
     Dosage: 1 GRAM, QW
     Dates: start: 201802
  23. HYDROXYUREA [Suspect]
     Active Substance: HYDROXYUREA
     Dosage: 1 GRAM, QW
     Route: 048
     Dates: start: 201802
  24. HYDROXYUREA [Suspect]
     Active Substance: HYDROXYUREA
     Dosage: 1 GRAM, QW
     Route: 048
     Dates: start: 201802
  25. HYDROXYUREA [Suspect]
     Active Substance: HYDROXYUREA
  26. HYDROXYUREA [Suspect]
     Active Substance: HYDROXYUREA
  27. HYDROXYUREA [Suspect]
     Active Substance: HYDROXYUREA
     Route: 065
  28. HYDROXYUREA [Suspect]
     Active Substance: HYDROXYUREA
     Route: 065
  29. ASPIRIN\CLOPIDOGREL [Suspect]
     Active Substance: ASPIRIN\CLOPIDOGREL
     Indication: Cardiovascular event prophylaxis
     Dosage: 1 DOSAGE FORM, QD
     Dates: end: 20240904
  30. ASPIRIN\CLOPIDOGREL [Suspect]
     Active Substance: ASPIRIN\CLOPIDOGREL
     Dosage: 1 DOSAGE FORM, QD
     Route: 048
     Dates: end: 20240904
  31. ASPIRIN\CLOPIDOGREL [Suspect]
     Active Substance: ASPIRIN\CLOPIDOGREL
     Dosage: 1 DOSAGE FORM, QD
     Route: 048
     Dates: end: 20240904
  32. ASPIRIN\CLOPIDOGREL [Suspect]
     Active Substance: ASPIRIN\CLOPIDOGREL
     Dosage: 1 DOSAGE FORM, QD
     Dates: end: 20240904
  33. METOPROLOL FUMARATE [Suspect]
     Active Substance: METOPROLOL FUMARATE
     Indication: Atrial fibrillation
     Dosage: 50 MILLIGRAM, QD
  34. METOPROLOL FUMARATE [Suspect]
     Active Substance: METOPROLOL FUMARATE
     Dosage: 50 MILLIGRAM, QD
  35. METOPROLOL FUMARATE [Suspect]
     Active Substance: METOPROLOL FUMARATE
     Dosage: 50 MILLIGRAM, QD
     Route: 048
  36. METOPROLOL FUMARATE [Suspect]
     Active Substance: METOPROLOL FUMARATE
     Dosage: 50 MILLIGRAM, QD
     Route: 048
  37. METOPROLOL FUMARATE [Suspect]
     Active Substance: METOPROLOL FUMARATE
  38. METOPROLOL FUMARATE [Suspect]
     Active Substance: METOPROLOL FUMARATE
  39. METOPROLOL FUMARATE [Suspect]
     Active Substance: METOPROLOL FUMARATE
     Route: 065
  40. METOPROLOL FUMARATE [Suspect]
     Active Substance: METOPROLOL FUMARATE
     Route: 065
  41. RUXOLITINIB [Suspect]
     Active Substance: RUXOLITINIB
     Indication: Myelofibrosis
     Dosage: 20 MILLIGRAM, QD
     Route: 048
     Dates: start: 202007, end: 20240705
  42. RUXOLITINIB [Suspect]
     Active Substance: RUXOLITINIB
     Dosage: 20 MILLIGRAM, QD
     Dates: start: 202007, end: 20240705
  43. RUXOLITINIB [Suspect]
     Active Substance: RUXOLITINIB
     Dosage: 20 MILLIGRAM, QD
     Dates: start: 202007, end: 20240705
  44. RUXOLITINIB [Suspect]
     Active Substance: RUXOLITINIB
     Dosage: 20 MILLIGRAM, QD
     Route: 048
     Dates: start: 202007, end: 20240705
  45. RUXOLITINIB [Suspect]
     Active Substance: RUXOLITINIB
     Route: 048
  46. RUXOLITINIB [Suspect]
     Active Substance: RUXOLITINIB
  47. RUXOLITINIB [Suspect]
     Active Substance: RUXOLITINIB
  48. RUXOLITINIB [Suspect]
     Active Substance: RUXOLITINIB
     Route: 048
  49. ESIDREX [Suspect]
     Active Substance: HYDROCHLOROTHIAZIDE
     Indication: Cardiovascular event prophylaxis
     Dosage: 12.5 MILLIGRAM, QD
     Dates: end: 202409
  50. ESIDREX [Suspect]
     Active Substance: HYDROCHLOROTHIAZIDE
     Dosage: 12.5 MILLIGRAM, QD
     Route: 048
     Dates: end: 202409
  51. ESIDREX [Suspect]
     Active Substance: HYDROCHLOROTHIAZIDE
     Dosage: 12.5 MILLIGRAM, QD
     Route: 048
     Dates: end: 202409
  52. ESIDREX [Suspect]
     Active Substance: HYDROCHLOROTHIAZIDE
     Dosage: 12.5 MILLIGRAM, QD
     Dates: end: 202409
  53. FUROSEMIDE [Suspect]
     Active Substance: FUROSEMIDE
     Indication: Myocardial ischaemia
     Dosage: 20 MILLIGRAM, QD
  54. FUROSEMIDE [Suspect]
     Active Substance: FUROSEMIDE
     Dosage: 20 MILLIGRAM, QD
  55. FUROSEMIDE [Suspect]
     Active Substance: FUROSEMIDE
     Dosage: 20 MILLIGRAM, QD
     Route: 048
  56. FUROSEMIDE [Suspect]
     Active Substance: FUROSEMIDE
     Dosage: 20 MILLIGRAM, QD
     Route: 048
  57. FUROSEMIDE [Suspect]
     Active Substance: FUROSEMIDE
  58. FUROSEMIDE [Suspect]
     Active Substance: FUROSEMIDE
  59. FUROSEMIDE [Suspect]
     Active Substance: FUROSEMIDE
     Route: 065
  60. FUROSEMIDE [Suspect]
     Active Substance: FUROSEMIDE
     Route: 065

REACTIONS (2)
  - Acute respiratory distress syndrome [Recovering/Resolving]
  - Interstitial lung disease [Recovering/Resolving]

NARRATIVE: CASE EVENT DATE: 20240830
